FAERS Safety Report 15863751 (Version 1)
Quarter: 2019Q1

REPORT INFORMATION
  Report Type: Spontaneous
  Country: IR (occurrence: IR)
  Receive Date: 20190124
  Receipt Date: 20190124
  Transmission Date: 20190417
  Serious: Yes (Other)
  Sender: FDA-Public Use
  Company Number: IR-NOVOPROD-642843

PATIENT
  Age: 696 Month
  Sex: Female
  Weight: 81 kg

DRUGS (1)
  1. NOVOMIX 30 FLEXPEN [Suspect]
     Active Substance: INSULIN ASPART
     Indication: TYPE 2 DIABETES MELLITUS
     Dosage: 21 IU, QD
     Route: 058
     Dates: start: 20181006, end: 20181027

REACTIONS (3)
  - Retinal tear [Unknown]
  - Retinal haemorrhage [Unknown]
  - Blood glucose fluctuation [Unknown]
